FAERS Safety Report 15147214 (Version 4)
Quarter: 2018Q3

REPORT INFORMATION
  Report Type: Report from Study
  Country: IE (occurrence: US)
  Receive Date: 20180716
  Receipt Date: 20180926
  Transmission Date: 20181010
  Serious: Yes (Death)
  Sender: FDA-Public Use
  Company Number: IE-ROCHE-2152479

PATIENT
  Age: 50 Year
  Sex: Male
  Weight: 60 kg

DRUGS (22)
  1. DIPRIVAN [Suspect]
     Active Substance: PROPOFOL
     Route: 065
     Dates: start: 20090622, end: 20090622
  2. VALIUM [Suspect]
     Active Substance: DIAZEPAM
     Indication: INSOMNIA
     Route: 048
     Dates: start: 20090625
  3. DIPRIVAN [Suspect]
     Active Substance: PROPOFOL
     Indication: INSOMNIA
     Route: 065
     Dates: end: 20090621
  4. EPHEDRINE SULFATE. [Suspect]
     Active Substance: EPHEDRINE SULFATE
     Indication: PRODUCT USED FOR UNKNOWN INDICATION
     Dosage: UNK
     Route: 065
  5. VICODIN [Suspect]
     Active Substance: ACETAMINOPHEN\HYDROCODONE BITARTRATE
     Indication: PRODUCT USED FOR UNKNOWN INDICATION
     Route: 065
  6. MIDAZOLAM HYDROCHLORIDE. [Suspect]
     Active Substance: MIDAZOLAM HYDROCHLORIDE
     Indication: SLEEP DISORDER THERAPY
     Route: 065
     Dates: start: 20090625
  7. ZOLOFT [Suspect]
     Active Substance: SERTRALINE HYDROCHLORIDE
     Indication: DEPRESSION
     Route: 065
  8. MIDAZOLAM HYDROCHLORIDE. [Suspect]
     Active Substance: MIDAZOLAM HYDROCHLORIDE
     Indication: INSOMNIA
     Route: 065
     Dates: start: 20090622, end: 20090624
  9. MIDAZOLAM HYDROCHLORIDE. [Suspect]
     Active Substance: MIDAZOLAM HYDROCHLORIDE
     Route: 065
  10. PAXIL [Suspect]
     Active Substance: PAROXETINE HYDROCHLORIDE
     Indication: DEPRESSION
     Dosage: UNK
     Route: 065
  11. DEMEROL [Suspect]
     Active Substance: MEPERIDINE HYDROCHLORIDE
     Indication: SLEEP DISORDER THERAPY
     Route: 065
  12. PROPOFOL. [Suspect]
     Active Substance: PROPOFOL
     Indication: INSOMNIA
     Dosage: (AT 11:00 O^CLOCK IN THE MORNING)?EMULSION INJECTION
     Route: 042
     Dates: start: 20090625
  13. PRILOSEC [Suspect]
     Active Substance: OMEPRAZOLE MAGNESIUM
     Indication: GASTRIC ULCER
     Route: 065
  14. DIPRIVAN [Suspect]
     Active Substance: PROPOFOL
     Route: 041
     Dates: start: 20090624, end: 20090624
  15. XANAX [Suspect]
     Active Substance: ALPRAZOLAM
     Indication: PRODUCT USED FOR UNKNOWN INDICATION
     Dosage: UNK
     Route: 065
  16. DILAUDID [Suspect]
     Active Substance: HYDROMORPHONE HYDROCHLORIDE
     Indication: PRODUCT USED FOR UNKNOWN INDICATION
     Dosage: UNK
     Route: 065
  17. SOMA [Suspect]
     Active Substance: CARISOPRODOL
     Indication: MUSCLE RELAXANT THERAPY
     Dosage: UNK
     Route: 065
  18. VISTARIL [Suspect]
     Active Substance: HYDROXYZINE PAMOATE
     Indication: ANXIOLYTIC THERAPY
     Dosage: UNK
     Route: 065
  19. LORAZEPAM. [Suspect]
     Active Substance: LORAZEPAM
     Indication: INSOMNIA
     Dosage: UNK
     Route: 042
     Dates: start: 20090622, end: 20090624
  20. PROPOFOL. [Suspect]
     Active Substance: PROPOFOL
     Indication: ANAESTHESIA
  21. LORAZEPAM. [Suspect]
     Active Substance: LORAZEPAM
     Indication: PROPHYLAXIS
     Dosage: AT ABOUT 2:00 O^CLOCK AND AT 5:00 O^CLOCK IN THE MORNING
     Route: 065
     Dates: start: 20090625
  22. LIDOCAINE HYDROCHLORIDE. [Suspect]
     Active Substance: LIDOCAINE HYDROCHLORIDE
     Indication: INSOMNIA
     Dosage: UNK
     Route: 041
     Dates: start: 20090624, end: 20090624

REACTIONS (3)
  - Respiratory arrest [Fatal]
  - Toxicity to various agents [Fatal]
  - Cardiac arrest [Fatal]

NARRATIVE: CASE EVENT DATE: 20090625
